FAERS Safety Report 9619328 (Version 1)
Quarter: 2013Q4

REPORT INFORMATION
  Report Type: Spontaneous
  Country: TR (occurrence: TR)
  Receive Date: 20131014
  Receipt Date: 20131014
  Transmission Date: 20140711
  Serious: Yes (Hospitalization)
  Sender: FDA-Public Use
  Company Number: TR-MILLENNIUM PHARMACEUTICALS, INC.-2013TUS001371

PATIENT
  Sex: 0

DRUGS (1)
  1. COLCHICINE [Suspect]
     Indication: FAMILIAL MEDITERRANEAN FEVER

REACTIONS (7)
  - Lymphadenopathy [Recovered/Resolved]
  - Drug resistance [Recovered/Resolved]
  - Hepatomegaly [Recovered/Resolved]
  - Splenomegaly [Recovered/Resolved]
  - Local swelling [Recovered/Resolved]
  - Urticaria [Recovered/Resolved]
  - Off label use [Unknown]
